FAERS Safety Report 10971260 (Version 5)
Quarter: 2020Q1

REPORT INFORMATION
  Report Type: Spontaneous
  Country: BR (occurrence: BR)
  Receive Date: 20150331
  Receipt Date: 20200108
  Transmission Date: 20200409
  Serious: Yes (Other)
  Sender: FDA-Public Use
  Company Number: BR-AMGEN-BRASP2015028856

PATIENT
  Age: 35 Year
  Sex: Female
  Weight: 83 kg

DRUGS (5)
  1. ENBREL [Suspect]
     Active Substance: ETANERCEPT
     Indication: RHEUMATOID ARTHRITIS
     Dosage: 50 MILLIGRAM, QWK
     Route: 058
     Dates: start: 201103, end: 20150306
  2. ENBREL [Suspect]
     Active Substance: ETANERCEPT
     Dosage: 50 MILLIGRAM
     Route: 065
  3. DEFLAZACORT [Concomitant]
     Active Substance: DEFLAZACORT
     Indication: ARTHRALGIA
  4. METHOTREXATE. [Concomitant]
     Active Substance: METHOTREXATE
     Dosage: UNK, WEEKLY
     Dates: start: 201103
  5. DEFLAZACORT [Concomitant]
     Active Substance: DEFLAZACORT
     Indication: ARTHRALGIA
     Dosage: 100 MILLIGRAM, AS NECESSARY
     Dates: start: 201103

REACTIONS (15)
  - Arthropathy [Unknown]
  - Back pain [Unknown]
  - Spinal pain [Unknown]
  - Injection site pain [Unknown]
  - Chikungunya virus infection [Recovered/Resolved]
  - Pyrexia [Unknown]
  - Rash [Recovered/Resolved]
  - Dengue fever [Recovered/Resolved]
  - Headache [Unknown]
  - Injection site discolouration [Unknown]
  - Injection site erythema [Recovered/Resolved]
  - Hypertension [Recovered/Resolved]
  - Joint swelling [Unknown]
  - Wrong technique in product usage process [Unknown]
  - Pruritus [Recovered/Resolved]

NARRATIVE: CASE EVENT DATE: 201501
